FAERS Safety Report 16910777 (Version 1)
Quarter: 2019Q4

REPORT INFORMATION
  Report Type: Report from Study
  Country: None (occurrence: US)
  Receive Date: 20191012
  Receipt Date: 20191012
  Transmission Date: 20200122
  Serious: Yes (Hospitalization, Other)
  Sender: FDA-Public Use
  Company Number: US-ABBVIE-19K-163-2835229-00

PATIENT
  Sex: Female

DRUGS (2)
  1. HUMIRA [Suspect]
     Active Substance: ADALIMUMAB
     Indication: RHEUMATOID ARTHRITIS
     Route: 058
     Dates: start: 20180923, end: 201909
  2. HUMIRA [Suspect]
     Active Substance: ADALIMUMAB
     Route: 058
     Dates: start: 201909

REACTIONS (16)
  - Fall [Unknown]
  - Injury [Unknown]
  - Loss of personal independence in daily activities [Not Recovered/Not Resolved]
  - Chills [Recovering/Resolving]
  - Arthralgia [Recovering/Resolving]
  - Bradycardia [Unknown]
  - Hypotension [Unknown]
  - Pain in extremity [Unknown]
  - Fall [Unknown]
  - Localised infection [Recovering/Resolving]
  - Gait disturbance [Not Recovered/Not Resolved]
  - Impaired self-care [Not Recovered/Not Resolved]
  - Arthralgia [Unknown]
  - Hip arthroplasty [Unknown]
  - Device dislocation [Recovering/Resolving]
  - Sternal fracture [Unknown]

NARRATIVE: CASE EVENT DATE: 2018
